FAERS Safety Report 6955058-2 (Version None)
Quarter: 2010Q3

REPORT INFORMATION
  Report Type: 
  Country: None (occurrence: None)
  Receive Date: 20100825
  Receipt Date: 20100807
  Transmission Date: 20110219
  Serious: Yes (Hospitalization)
  Sender: FDA-Public Use
  Company Number: JPI-P-011815

PATIENT
  Age: 26 Year
  Sex: Female
  Weight: 63.5036 kg

DRUGS (3)
  1. XYREM [Suspect]
     Indication: NARCOLEPSY
     Dosage: , ORAL
     Route: 048
     Dates: start: 20100410
  2. HYDROXYCHLOROQUINE [Suspect]
     Indication: NARCOLEPSY
     Dates: start: 20100610, end: 20100701
  3. ALLERGY MEDICATION [Concomitant]

REACTIONS (4)
  - APHAGIA [None]
  - DEHYDRATION [None]
  - NAUSEA [None]
  - VOMITING [None]
